FAERS Safety Report 22387232 (Version 1)
Quarter: 2023Q2

REPORT INFORMATION
  Report Type: Spontaneous
  Country: FR (occurrence: FR)
  Receive Date: 20230531
  Receipt Date: 20230531
  Transmission Date: 20230722
  Serious: Yes (Hospitalization, Other)
  Sender: FDA-Public Use
  Company Number: FR-AFSSAPS-CN2023000431

PATIENT
  Age: 22 Year
  Sex: Female
  Weight: 56 kg

DRUGS (11)
  1. IBUPROFEN [Suspect]
     Active Substance: IBUPROFEN
     Indication: Back pain
     Dosage: 400 MILLIGRAM, ONCE A DAY (PRISE DE 2 COMPRIM?S AU TOTAL)(TAKE 2 TABLETS IN TOTAL)
     Route: 048
     Dates: start: 20230327
  2. TIAPROFENIC ACID [Suspect]
     Active Substance: TIAPROFENIC ACID
     Indication: Inflammation
     Dosage: 200 MILLIGRAM, 3 TIMES A DAY (UN COMPRIM? MATIN, MIDI, SOIR PENDANT 3 JOURS)(ONE TABLET MORNING, NOO
     Route: 048
     Dates: start: 20230105
  3. AMOXICILLIN [Concomitant]
     Active Substance: AMOXICILLIN
     Indication: Dental caries
     Dosage: 1 GRAM, TWO TIMES A DAY (1G MATIN ET SOIR PENDANT 6 JOURS)(1G MORNING AND EVENING FOR 6 DAYS)
     Route: 048
     Dates: start: 20221228
  4. ARIPIPRAZOLE [Concomitant]
     Active Substance: ARIPIPRAZOLE
     Indication: Anxiety
     Dosage: 10 MILLIGRAM, ONCE A DAY (1 COMPRIM? AU COUCHER)(1 TABLET AT BEDTIME)
     Route: 048
  5. BIRODOGYL [Concomitant]
     Active Substance: METRONIDAZOLE\SPIRAMYCIN
     Indication: Tooth infection
     Dosage: 1 DOSAGE FORM, TWO TIMES A DAY(1 COMPRIM? MATIN ET SOIR PENDANT 5 JOURS)(1 TABLET MORNING AND EVENIN
     Route: 048
     Dates: start: 20230105
  6. CYAMEMAZINE [Concomitant]
     Active Substance: CYAMEMAZINE
     Indication: Anxiety
     Dosage: 12.5 MILLIGRAM, ONCE A DAY (12.5MG AU COUCHER + 12.5MG SI ANXI?T? PERSISTANTE)(12.5MG AT BEDTIME + 1
     Route: 048
  7. MIDAZOLAM HYDROCHLORIDE [Concomitant]
     Active Substance: MIDAZOLAM HYDROCHLORIDE
     Indication: Epilepsy
     Dosage: 10 MILLIGRAM (TOTAL)(UNE DOSE EN INTRABUCCAL SI CRISE)(AN INTRAORAL DOSE IF CRISIS)
     Route: 048
  8. ASCORBIC ACID\FERROUS SULFATE [Concomitant]
     Active Substance: ASCORBIC ACID\FERROUS SULFATE
     Indication: Iron deficiency anaemia
     Dosage: 1 DOSAGE FORM, 3 TIMES A DAY (1 G?LULE MATIN, MIDI ET SOIR PENDANT 1 MOIS)(1 CAPSULE MORNING, NOON A
     Route: 048
     Dates: start: 20230422
  9. TROPATEPINE HYDROCHLORIDE [Concomitant]
     Active Substance: TROPATEPINE HYDROCHLORIDE
     Indication: Anxiety
     Dosage: 10 MILLIGRAM, ONCE A DAY (10MG LE MATIN)(10MG IN THE MORNING)
     Route: 048
  10. OMEPRAZOLE [Concomitant]
     Active Substance: OMEPRAZOLE
     Indication: Duodenogastric reflux
     Dosage: 20 MILLIGRAM, TWO TIMES A DAY (1 G?LULE MATIN ET SOIR PENDANT 5 JOURS)(1 CAPSULE MORNING AND EVENING
     Route: 048
     Dates: start: 20230415, end: 20230420
  11. OMEPRAZOLE [Concomitant]
     Active Substance: OMEPRAZOLE
     Dosage: 20 MILLIGRAM, ONCE A DAY (1 G?LULE LE SOIR PENDANT 1 MOIS)(1 CAPSULE IN THE EVENING FOR 1 MONTH)
     Route: 048
     Dates: start: 20230420

REACTIONS (2)
  - Endocarditis [Recovered/Resolved]
  - Infection [Recovered/Resolved]

NARRATIVE: CASE EVENT DATE: 20230426
